FAERS Safety Report 6399403-8 (Version None)
Quarter: 2009Q4

REPORT INFORMATION
  Report Type: 
  Country: None (occurrence: None)
  Receive Date: 20091008
  Receipt Date: 20091008
  Transmission Date: 20100525
  Serious: Yes (Death, Hospitalization)
  Sender: FDA-Public Use
  Company Number: None

PATIENT
  Sex: Male
  Weight: 85.4 kg

DRUGS (2)
  1. LPAM (MELPHALAN) [Suspect]
     Indication: AMYLOIDOSIS
     Dosage: 200 MG X 2 DAYS
     Dates: start: 20090621, end: 20090622
  2. DEXAMETHASONE [Suspect]
     Indication: AMYLOIDOSIS
     Dosage: 100 MG X 2 DAYS
     Dates: start: 20090621, end: 20090622

REACTIONS (2)
  - OEDEMA PERIPHERAL [None]
  - RENAL FAILURE [None]
